FAERS Safety Report 23870393 (Version 1)
Quarter: 2024Q2

REPORT INFORMATION
  Report Type: Other
  Country: US (occurrence: US)
  Receive Date: 20240518
  Receipt Date: 20240518
  Transmission Date: 20240716
  Serious: No
  Sender: FDA-Public Use
  Company Number: US-TRAVERE-2024TVT00462

PATIENT
  Sex: Male

DRUGS (7)
  1. FILSPARI [Suspect]
     Active Substance: SPARSENTAN
     Indication: Focal segmental glomerulosclerosis
     Route: 048
     Dates: start: 20230908
  2. UCERIS [Concomitant]
     Active Substance: BUDESONIDE
  3. PENTOXIFYLLINE [Concomitant]
     Active Substance: PENTOXIFYLLINE
  4. BUMETANIDE [Concomitant]
     Active Substance: BUMETANIDE
  5. METOLAZONE [Concomitant]
     Active Substance: METOLAZONE
  6. FARXIGA [Concomitant]
     Active Substance: DAPAGLIFLOZIN PROPANEDIOL
  7. AMILORIDE HCL [Concomitant]
     Active Substance: AMILORIDE HYDROCHLORIDE

REACTIONS (2)
  - Ear infection [Unknown]
  - Product use in unapproved indication [Unknown]
